FAERS Safety Report 4974490-X (Version None)
Quarter: 2006Q2

REPORT INFORMATION
  Report Type: 
  Country: None (occurrence: None)
  Receive Date: 20060410
  Receipt Date: 20060112
  Transmission Date: 20061013
  Serious: Yes (Hospitalization)
  Sender: FDA-Public Use
  Company Number: 2006006226

PATIENT
  Age: 71 Year
  Sex: Female

DRUGS (6)
  1. SULFASALAZINE [Suspect]
     Indication: RHEUMATOID ARTHRITIS
     Dosage: 2 GRAM (500 MG, 4 IN 1 D), ORAL
     Route: 048
     Dates: start: 20051108, end: 20051221
  2. PREDNISONE TAB [Suspect]
     Indication: ILL-DEFINED DISORDER
     Dosage: 50 MG (50 MG, 1 IN 1 D), ORAL
     Route: 048
     Dates: start: 20051108, end: 20051221
  3. NICARDIPINE (NICARDIPINE) [Suspect]
     Indication: RHEUMATOID ARTHRITIS
     Dosage: 15 MG (5 MG, 3 IN 1 D), ORAL
     Route: 048
     Dates: start: 20051105, end: 20051221
  4. CRESTOR [Concomitant]
  5. COAPROVEL (HYDROCHLOROTHIAZIDE, IRBESARTAN) [Concomitant]
  6. PAROXETINE HYDROCHLORIDE [Concomitant]

REACTIONS (4)
  - DYSPNOEA [None]
  - HYPERTHERMIA [None]
  - LUNG INFECTION [None]
  - NEUTROPENIA [None]
